FAERS Safety Report 17929393 (Version 1)
Quarter: 2020Q2

REPORT INFORMATION
  Report Type: Spontaneous
  Country: US (occurrence: US)
  Receive Date: 20200623
  Receipt Date: 20200623
  Transmission Date: 20200714
  Serious: No
  Sender: FDA-Public Use
  Company Number: US-ELI_LILLY_AND_COMPANY-US202006000439

PATIENT
  Sex: Female

DRUGS (2)
  1. BASAGLAR [Suspect]
     Active Substance: INSULIN GLARGINE
     Indication: DIABETES MELLITUS
     Dosage: 10 U, DAILY
     Route: 058
     Dates: start: 20200514, end: 20200529
  2. BASAGLAR [Suspect]
     Active Substance: INSULIN GLARGINE
     Dosage: 15 U, DAILY
     Route: 058
     Dates: start: 20200529

REACTIONS (1)
  - Blood glucose increased [Recovering/Resolving]
